FAERS Safety Report 17347338 (Version 1)
Quarter: 2020Q1

REPORT INFORMATION
  Report Type: Spontaneous
  Country: DE (occurrence: DE)
  Receive Date: 20200130
  Receipt Date: 20200130
  Transmission Date: 20200409
  Serious: Yes (Other)
  Sender: FDA-Public Use
  Company Number: DE-009507513-2001DEU007383

PATIENT
  Sex: Male

DRUGS (6)
  1. TAMSULOSIN HYDROCHLORIDE. [Interacting]
     Active Substance: TAMSULOSIN HYDROCHLORIDE
     Route: 065
  2. REQUIP [Interacting]
     Active Substance: ROPINIROLE HYDROCHLORIDE
     Indication: PARKINSON^S DISEASE
     Dosage: 16MG PER DAY
     Route: 065
  3. LEVOCARB [Interacting]
     Active Substance: CARBIDOPA\LEVODOPA
     Dosage: 1 UNK, QD
     Route: 065
  4. RIVOTRIL [Interacting]
     Active Substance: CLONAZEPAM
     Dosage: 4 UNK, QD
     Route: 065
  5. MIRTAZAPINE. [Suspect]
     Active Substance: MIRTAZAPINE
     Dosage: 1 UNK, QD
     Route: 065
  6. LEVODOPA [Interacting]
     Active Substance: LEVODOPA
     Dosage: 125MG SEE DOSAGE TEXT
     Route: 065

REACTIONS (9)
  - Memory impairment [Unknown]
  - Drug interaction [Unknown]
  - Tremor [Unknown]
  - Drooling [Unknown]
  - Micturition urgency [Unknown]
  - Condition aggravated [Unknown]
  - Restlessness [Unknown]
  - Dizziness [Unknown]
  - Syncope [Recovered/Resolved]
